FAERS Safety Report 5534101-1 (Version None)
Quarter: 2007Q4

REPORT INFORMATION
  Report Type: 
  Country: None (occurrence: None)
  Receive Date: 20071205
  Receipt Date: 20071126
  Transmission Date: 20080405
  Serious: Yes (Hospitalization)
  Sender: FDA-Public Use
  Company Number: JP-BAYER-200710832BYL

PATIENT
  Age: 70 Year
  Sex: Male
  Weight: 50 kg

DRUGS (1)
  1. CIPROXAN-I.V. [Suspect]
     Indication: URINARY TRACT INFECTION
     Route: 041
     Dates: start: 20071107, end: 20071109

REACTIONS (1)
  - HEPATIC FUNCTION ABNORMAL [None]
